FAERS Safety Report 5804122-X (Version None)
Quarter: 2008Q3

REPORT INFORMATION
  Report Type: 
  Country: None (occurrence: None)
  Receive Date: 20080707
  Receipt Date: 20080707
  Transmission Date: 20090109
  Serious: Yes (Death)
  Sender: FDA-Public Use
  Company Number: None

PATIENT
  Age: 20 Year
  Sex: Female
  Weight: 46.2669 kg

DRUGS (1)
  1. MERCAPTOPURINE [Suspect]
     Indication: CROHN'S DISEASE
     Dosage: ONE AND ONE HALF TABLETS ONCE A DAY
     Dates: start: 20010901, end: 20050611

REACTIONS (2)
  - NON-HODGKIN'S LYMPHOMA [None]
  - OFF LABEL USE [None]
